FAERS Safety Report 9303833 (Version 1)
Quarter: 2013Q2

REPORT INFORMATION
  Report Type: Spontaneous
  Country: US (occurrence: US)
  Receive Date: 20130522
  Receipt Date: 20130522
  Transmission Date: 20140414
  Serious: Yes (Hospitalization)
  Sender: FDA-Public Use
  Company Number: US-PFIZER INC-2013155619

PATIENT
  Age: 55 Year
  Sex: Female
  Weight: 140.59 kg

DRUGS (2)
  1. LYRICA [Suspect]
     Indication: FIBROMYALGIA
     Dosage: 75 MG, 2X/DAY
     Route: 048
  2. CELEBREX [Suspect]
     Indication: PAIN
     Dosage: 200 MG, 2X/DAY
     Route: 048

REACTIONS (1)
  - Arthropathy [Unknown]
